FAERS Safety Report 18335647 (Version 3)
Quarter: 2020Q4

REPORT INFORMATION
  Report Type: Spontaneous
  Country: US (occurrence: US)
  Receive Date: 20201001
  Receipt Date: 20201218
  Transmission Date: 20210113
  Serious: Yes (Hospitalization, Other)
  Sender: FDA-Public Use
  Company Number: US-ASTRAZENECA-2020SF23293

PATIENT
  Age: 13807 Day
  Sex: Male

DRUGS (60)
  1. DOXYCYCLINE. [Concomitant]
     Active Substance: DOXYCYCLINE
  2. ZOSYN [Concomitant]
     Active Substance: PIPERACILLIN SODIUM\TAZOBACTAM SODIUM
  3. KEFLEX [Concomitant]
     Active Substance: CEPHALEXIN
  4. CLINDAMYCIN. [Concomitant]
     Active Substance: CLINDAMYCIN
  5. LIDOCAINE. [Concomitant]
     Active Substance: LIDOCAINE
  6. LYRICA [Concomitant]
     Active Substance: PREGABALIN
     Dates: start: 20130311
  7. LEVOFLOXACIN. [Concomitant]
     Active Substance: LEVOFLOXACIN
     Dates: start: 20140414
  8. TORSEMIDE. [Concomitant]
     Active Substance: TORSEMIDE
     Dates: start: 20140912
  9. DIOVAN [Concomitant]
     Active Substance: VALSARTAN
     Dates: start: 20190611
  10. FARXIGA [Suspect]
     Active Substance: DAPAGLIFLOZIN PROPANEDIOL
     Indication: WEIGHT DECREASED
     Route: 048
     Dates: start: 201509, end: 20190408
  11. FARXIGA [Suspect]
     Active Substance: DAPAGLIFLOZIN PROPANEDIOL
     Indication: BLOOD PRESSURE DECREASED
     Route: 048
     Dates: start: 20150924
  12. LEXAPRO [Concomitant]
     Active Substance: ESCITALOPRAM OXALATE
  13. SUMATRIPTAN SUCCINAT [Concomitant]
     Dates: start: 20130315
  14. HYDRALAZINE HCL [Concomitant]
     Active Substance: HYDRALAZINE HYDROCHLORIDE
     Dates: start: 20131021
  15. PAROXETINE HCL [Concomitant]
     Active Substance: PAROXETINE HYDROCHLORIDE
     Dates: start: 20140203
  16. CARVEDILOL. [Concomitant]
     Active Substance: CARVEDILOL
     Dates: start: 20181025
  17. FUROSEMIDE. [Concomitant]
     Active Substance: FUROSEMIDE
     Dates: start: 20181105
  18. FARXIGA [Suspect]
     Active Substance: DAPAGLIFLOZIN PROPANEDIOL
     Indication: TYPE 2 DIABETES MELLITUS
     Route: 048
     Dates: start: 201509, end: 20190408
  19. FARXIGA [Suspect]
     Active Substance: DAPAGLIFLOZIN PROPANEDIOL
     Indication: WEIGHT DECREASED
     Route: 048
     Dates: start: 20150924, end: 201603
  20. FARXIGA [Suspect]
     Active Substance: DAPAGLIFLOZIN PROPANEDIOL
     Indication: BLOOD PRESSURE DECREASED
     Route: 048
     Dates: start: 20150924, end: 201603
  21. ATENOLOL. [Concomitant]
     Active Substance: ATENOLOL
  22. MORPHINE [Concomitant]
     Active Substance: MORPHINE
  23. OXYBUTYNIN. [Concomitant]
     Active Substance: OXYBUTYNIN CHLORIDE
  24. METFORMIN [Concomitant]
     Active Substance: METFORMIN HYDROCHLORIDE
  25. ALPRAZOLAM. [Concomitant]
     Active Substance: ALPRAZOLAM
     Dates: start: 20130125
  26. DIGOXIN. [Concomitant]
     Active Substance: DIGOXIN
     Dates: start: 20170708
  27. FARXIGA [Suspect]
     Active Substance: DAPAGLIFLOZIN PROPANEDIOL
     Indication: WEIGHT DECREASED
     Route: 048
     Dates: start: 20161019
  28. LANTUS [Concomitant]
     Active Substance: INSULIN GLARGINE
  29. METFORMIN HCL [Concomitant]
     Active Substance: METFORMIN HYDROCHLORIDE
     Dates: start: 20121008
  30. IBUPROFEN. [Concomitant]
     Active Substance: IBUPROFEN
     Dates: start: 20130523
  31. AZITHROMYCIN ANHYDROUS. [Concomitant]
     Active Substance: AZITHROMYCIN ANHYDROUS
     Dates: start: 20140303
  32. ISOSORBIDE MONONITRATE. [Concomitant]
     Active Substance: ISOSORBIDE MONONITRATE
     Dates: start: 20170617
  33. MAGNESIUM OXIDE. [Concomitant]
     Active Substance: MAGNESIUM OXIDE
     Dates: start: 20190611
  34. FARXIGA [Suspect]
     Active Substance: DAPAGLIFLOZIN PROPANEDIOL
     Indication: BLOOD PRESSURE DECREASED
     Route: 048
     Dates: start: 201509, end: 20190408
  35. FARXIGA [Suspect]
     Active Substance: DAPAGLIFLOZIN PROPANEDIOL
     Indication: TYPE 2 DIABETES MELLITUS
     Route: 048
     Dates: start: 20150924, end: 201603
  36. FARXIGA [Suspect]
     Active Substance: DAPAGLIFLOZIN PROPANEDIOL
     Indication: TYPE 2 DIABETES MELLITUS
     Route: 048
     Dates: start: 20150924
  37. PROCARDIA [Concomitant]
     Active Substance: NIFEDIPINE
  38. COZAAR [Concomitant]
     Active Substance: LOSARTAN POTASSIUM
  39. ACETAMINOPHEN. [Concomitant]
     Active Substance: ACETAMINOPHEN
  40. ASPIRIN. [Concomitant]
     Active Substance: ASPIRIN
  41. INDOMETHACIN. [Concomitant]
     Active Substance: INDOMETHACIN
     Dates: start: 20130122
  42. ROSUVASTATIN CALCIUM. [Concomitant]
     Active Substance: ROSUVASTATIN CALCIUM
     Dates: start: 20190611
  43. HUMALOG [Concomitant]
     Active Substance: INSULIN LISPRO
     Dates: start: 20190611
  44. FARXIGA [Suspect]
     Active Substance: DAPAGLIFLOZIN PROPANEDIOL
     Indication: WEIGHT DECREASED
     Route: 048
     Dates: start: 20150924
  45. FARXIGA [Suspect]
     Active Substance: DAPAGLIFLOZIN PROPANEDIOL
     Indication: TYPE 2 DIABETES MELLITUS
     Route: 048
     Dates: start: 20161019
  46. PROTONIX [Concomitant]
     Active Substance: PANTOPRAZOLE SODIUM
  47. FARXIGA [Suspect]
     Active Substance: DAPAGLIFLOZIN PROPANEDIOL
     Indication: BLOOD PRESSURE DECREASED
     Route: 048
     Dates: start: 20161019
  48. VANCOMYCIN [Concomitant]
     Active Substance: VANCOMYCIN
  49. NOVOLOG [Concomitant]
     Active Substance: INSULIN ASPART
  50. LISINOPRIL. [Concomitant]
     Active Substance: LISINOPRIL
  51. SYNTHROID [Concomitant]
     Active Substance: LEVOTHYROXINE SODIUM
     Dates: start: 20121024
  52. PHENAZOPYRIDINE HCL [Concomitant]
     Active Substance: PHENAZOPYRIDINE HYDROCHLORIDE
     Dates: start: 20130207
  53. CLOPIDOGREL BISULFAT [Concomitant]
     Active Substance: CLOPIDOGREL BISULFATE
  54. CARDIZEM [Concomitant]
     Active Substance: DILTIAZEM HYDROCHLORIDE
     Dates: start: 20190611
  55. LEVOTHYROXINE. [Concomitant]
     Active Substance: LEVOTHYROXINE
  56. CIPROFLOXACIN. [Concomitant]
     Active Substance: CIPROFLOXACIN
     Dates: start: 20121201
  57. DOXYCYCLINE HYCLATE. [Concomitant]
     Active Substance: DOXYCYCLINE HYCLATE
     Dates: start: 20130312
  58. RANITIDINE HCL [Concomitant]
     Active Substance: RANITIDINE HYDROCHLORIDE
     Dates: start: 20131021
  59. ESCITALOPRAM [Concomitant]
     Active Substance: ESCITALOPRAM OXALATE
     Dates: start: 20140414
  60. DILTIAZEM. [Concomitant]
     Active Substance: DILTIAZEM
     Dates: start: 20170710

REACTIONS (8)
  - Scrotal abscess [Unknown]
  - Fournier^s gangrene [Unknown]
  - Urinary tract infection [Unknown]
  - Necrotising fasciitis [Unknown]
  - Cellulitis [Unknown]
  - Testicular necrosis [Unknown]
  - Sepsis [Unknown]
  - Scrotal oedema [Unknown]

NARRATIVE: CASE EVENT DATE: 20160217
